FAERS Safety Report 15954764 (Version 16)
Quarter: 2024Q3

REPORT INFORMATION
  Report Type: Report from Study
  Country: CA (occurrence: CA)
  Receive Date: 20190213
  Receipt Date: 20240926
  Transmission Date: 20241016
  Serious: Yes (Hospitalization, Other)
  Sender: ROCHE
  Company Number: CA-ROCHE-2260675

PATIENT
  Age: 61 Year
  Sex: Male

DRUGS (2)
  1. OCREVUS [Suspect]
     Active Substance: OCRELIZUMAB
     Indication: Primary progressive multiple sclerosis
     Dosage: 300 MG AT DAY 0 AND 14, THEN 600 MG EVERY 6 MONTHS
     Route: 042
     Dates: start: 20180820
  2. OCREVUS [Suspect]
     Active Substance: OCRELIZUMAB
     Dosage: 300 MG AT DAY 0 AND 14, THEN 600 MG EVERY 6 MONTH:DELAYED
     Route: 042

REACTIONS (6)
  - Urinary tract infection [Recovered/Resolved]
  - Urinary tract infection [Unknown]
  - Trigeminal neuralgia [Recovering/Resolving]
  - COVID-19 [Unknown]
  - Off label use [Unknown]
  - Viral infection [Unknown]

NARRATIVE: CASE EVENT DATE: 20200101
